FAERS Safety Report 24631831 (Version 2)
Quarter: 2024Q4

REPORT INFORMATION
  Report Type: Spontaneous
  Country: IT (occurrence: IT)
  Receive Date: 20241118
  Receipt Date: 20241121
  Transmission Date: 20250114
  Serious: Yes (Other)
  Sender: NOVARTIS
  Company Number: IT-SANDOZ-SDZ2024IT095083

PATIENT
  Age: 58 Year
  Sex: Male

DRUGS (11)
  1. EVEROLIMUS [Interacting]
     Active Substance: EVEROLIMUS
     Indication: Hepatitis B
     Dosage: UNK (3 ? 8 NG/ML)
     Route: 065
  2. EVEROLIMUS [Interacting]
     Active Substance: EVEROLIMUS
     Indication: Renal transplant
  3. EVEROLIMUS [Interacting]
     Active Substance: EVEROLIMUS
     Indication: Immunosuppressant drug therapy
  4. ENTECAVIR [Suspect]
     Active Substance: ENTECAVIR
     Indication: Hepatitis B
     Dosage: 0.5 MG, QW (AS SINGLE DOSE AT THE END OF HEMODIALYSIS SESSION)
     Route: 065
     Dates: start: 2011
  5. ENTECAVIR [Suspect]
     Active Substance: ENTECAVIR
     Indication: Renal transplant
     Dosage: 0.5 MG (EVERY 10 DAYS)
     Route: 065
     Dates: start: 2011
  6. ENTECAVIR [Suspect]
     Active Substance: ENTECAVIR
     Indication: Hepatitis B
     Dosage: 0.5 MG, QD
     Route: 065
     Dates: start: 2011
  7. TACROLIMUS [Suspect]
     Active Substance: TACROLIMUS
     Indication: Immunosuppressant drug therapy
     Dosage: UNK (4 ? 6 NG/ML)
     Route: 065
  8. MYCOPHENOLIC ACID [Concomitant]
     Active Substance: MYCOPHENOLIC ACID
     Indication: Product used for unknown indication
     Dosage: 720 MG, QD (360 MG, BID)
     Route: 065
  9. TENOFOVIR [Concomitant]
     Active Substance: TENOFOVIR
     Indication: Hepatitis B
     Dosage: 245 MG, Q48H
     Route: 065
  10. TENOFOVIR [Concomitant]
     Active Substance: TENOFOVIR
     Indication: Renal transplant
     Dosage: 245 MG
     Route: 065
  11. TENOFOVIR [Concomitant]
     Active Substance: TENOFOVIR
     Indication: Hepatitis B
     Dosage: 245 MG, QD (245 MG/48 HOURS)
     Route: 065

REACTIONS (5)
  - Renal impairment [Not Recovered/Not Resolved]
  - Hepatitis B [Recovered/Resolved]
  - Drug interaction [Unknown]
  - Drug resistance [Unknown]
  - Proteinuria [Recovered/Resolved]
